FAERS Safety Report 23526050 (Version 1)
Quarter: 2024Q1

REPORT INFORMATION
  Report Type: Spontaneous
  Country: US (occurrence: US)
  Receive Date: 20240215
  Receipt Date: 20240215
  Transmission Date: 20240409
  Serious: Yes (Other)
  Sender: FDA-Public Use
  Company Number: US-BRISTOL-MYERS SQUIBB COMPANY-2024-023086

PATIENT
  Age: 56 Year
  Sex: Female
  Weight: 97.52 kg

DRUGS (1)
  1. REVLIMID [Suspect]
     Active Substance: LENALIDOMIDE
     Indication: Product used for unknown indication
     Dosage: DAILY FOR 21DAYS
     Route: 048

REACTIONS (4)
  - Neuropathy peripheral [Unknown]
  - Gastrointestinal disorder [Unknown]
  - Dry skin [Unknown]
  - Myalgia [Unknown]
